FAERS Safety Report 15793421 (Version 1)
Quarter: 2019Q1

REPORT INFORMATION
  Report Type: Spontaneous
  Country: US (occurrence: US)
  Receive Date: 20190107
  Receipt Date: 20190107
  Transmission Date: 20190417
  Serious: Yes (Death)
  Sender: FDA-Public Use
  Company Number: US-BAYER-2019-003528

PATIENT
  Age: 49 Year
  Sex: Female

DRUGS (11)
  1. METHADONE [Suspect]
     Active Substance: METHADONE HYDROCHLORIDE
  2. CLOZAPINE. [Suspect]
     Active Substance: CLOZAPINE
  3. PROPRANOLOL [Suspect]
     Active Substance: PROPRANOLOL HYDROCHLORIDE
  4. LITHIUM. [Suspect]
     Active Substance: LITHIUM
  5. LORATADINE. [Suspect]
     Active Substance: LORATADINE
     Route: 048
  6. CLONAZEPAM. [Suspect]
     Active Substance: CLONAZEPAM
  7. MIRTAZAPINE. [Suspect]
     Active Substance: MIRTAZAPINE
  8. MELATONIN [Suspect]
     Active Substance: MELATONIN
  9. BENZTROPINE [BENZATROPINE] [Suspect]
     Active Substance: BENZTROPINE
  10. THIAMINE. [Suspect]
     Active Substance: THIAMINE
  11. ZOLPIDEM [Suspect]
     Active Substance: ZOLPIDEM\ZOLPIDEM TARTRATE

REACTIONS (2)
  - Completed suicide [Fatal]
  - Toxicity to various agents [Fatal]
